FAERS Safety Report 6787911-7 (Version None)
Quarter: 2010Q2

REPORT INFORMATION
  Report Type: 
  Country: None (occurrence: None)
  Receive Date: 20100623
  Receipt Date: 20080407
  Transmission Date: 20101027
  Serious: No
  Sender: FDA-Public Use
  Company Number: US-PFIZER INC-2007094367

PATIENT
  Sex: Female
  Weight: 59.545 kg

DRUGS (4)
  1. DEPO-PROVERA SUSPENSION/INJ [Suspect]
     Indication: CONTRACEPTION
     Dates: start: 19980101, end: 19980101
  2. DEPO-PROVERA SUSPENSION/INJ [Suspect]
     Dates: start: 20060401, end: 20060401
  3. ALEVE (CAPLET) [Suspect]
  4. IBUPROFEN [Concomitant]

REACTIONS (2)
  - OSTEOPENIA [None]
  - PAIN IN EXTREMITY [None]
